FAERS Safety Report 7757031-3 (Version None)
Quarter: 2011Q3

REPORT INFORMATION
  Report Type: 
  Country: None (occurrence: None)
  Receive Date: 20110916
  Receipt Date: 20110908
  Transmission Date: 20111222
  Serious: Yes (Other)
  Sender: FDA-Public Use
  Company Number: US-ABBOTT-11P-163-0853091-00

PATIENT
  Sex: Female

DRUGS (7)
  1. DEPAKOTE ER [Suspect]
     Dates: start: 20110907
  2. KLONOPIN [Concomitant]
     Indication: CONVULSION
  3. DEPAKOTE ER [Suspect]
     Indication: CONVULSION
     Dates: start: 20090101, end: 20110601
  4. KLONOPIN [Concomitant]
     Indication: ANXIETY DISORDER
  5. UNKNOWN MEDICATION [Concomitant]
     Indication: DEPRESSION
  6. DEPAKOTE ER [Suspect]
     Dates: start: 20110601, end: 20110701
  7. UNKNOWN MEDICATION [Concomitant]
     Indication: BIPOLAR DISORDER

REACTIONS (4)
  - PETIT MAL EPILEPSY [None]
  - HEAD INJURY [None]
  - DRUG DOSE OMISSION [None]
  - LOSS OF CONSCIOUSNESS [None]
